FAERS Safety Report 9735571 (Version 2)
Quarter: 2015Q3

REPORT INFORMATION
  Report Type: Spontaneous
  Country: US (occurrence: US)
  Receive Date: 20131206
  Receipt Date: 20150804
  Transmission Date: 20151125
  Serious: No
  Sender: FDA-Public Use
  Company Number: US-GILEAD-2009-0023974

PATIENT
  Age: 60 Year
  Sex: Male
  Weight: 127.91 kg

DRUGS (23)
  1. LETAIRIS [Suspect]
     Active Substance: AMBRISENTAN
     Indication: PULMONARY ARTERIAL HYPERTENSION
     Route: 048
     Dates: start: 20090303
  2. LIBRAX [Concomitant]
     Active Substance: CHLORDIAZEPOXIDE HYDROCHLORIDE\CLIDINIUM BROMIDE
  3. FLEXERIL [Concomitant]
     Active Substance: CYCLOBENZAPRINE HYDROCHLORIDE
  4. METOCLOPRAMIDE. [Concomitant]
     Active Substance: METOCLOPRAMIDE
  5. LEVOTHYROXINE. [Concomitant]
     Active Substance: LEVOTHYROXINE
  6. LOPERAMIDE [Concomitant]
     Active Substance: LOPERAMIDE
  7. POLYETHYLENE GLY [Concomitant]
  8. LORTADINE [Concomitant]
  9. DIPHENOXYLATE/ATROP [Concomitant]
  10. LISINOPRIL. [Concomitant]
     Active Substance: LISINOPRIL
  11. IPRATROPIUM BROMIDE. [Concomitant]
     Active Substance: IPRATROPIUM BROMIDE
  12. SIMVASTATIN. [Concomitant]
     Active Substance: SIMVASTATIN
  13. FOLIC ACID. [Concomitant]
     Active Substance: FOLIC ACID
  14. MORPHINE [Concomitant]
     Active Substance: MORPHINE
  15. RANITIDINE [Concomitant]
     Active Substance: RANITIDINE\RANITIDINE HYDROCHLORIDE
  16. COUMADIN [Concomitant]
     Active Substance: WARFARIN SODIUM
  17. METOPROLOL [Concomitant]
     Active Substance: METOPROLOL
  18. SUCRALFATE. [Concomitant]
     Active Substance: SUCRALFATE
  19. TIZANIDINE HCL [Concomitant]
     Active Substance: TIZANIDINE HYDROCHLORIDE
  20. VIAGRA [Concomitant]
     Active Substance: SILDENAFIL CITRATE
  21. FUROSEMIDE. [Concomitant]
     Active Substance: FUROSEMIDE
  22. FORMOTEROL FUMARATE [Concomitant]
     Active Substance: FORMOTEROL FUMARATE
  23. PROVIGIL [Concomitant]
     Active Substance: MODAFINIL

REACTIONS (5)
  - Hot flush [Unknown]
  - Anaemia [Unknown]
  - Feeling cold [Unknown]
  - Nasal congestion [Unknown]
  - Peripheral swelling [Unknown]
